FAERS Safety Report 5767193-5 (Version None)
Quarter: 2008Q2

REPORT INFORMATION
  Report Type: 
  Country: None (occurrence: None)
  Receive Date: 20080611
  Receipt Date: 20080611
  Transmission Date: 20081010
  Serious: Yes (Hospitalization)
  Sender: FDA-Public Use
  Company Number: None

PATIENT
  Sex: Female
  Weight: 125.45 kg

DRUGS (2)
  1. CARBOPLATIN [Suspect]
     Dosage: 520 MG
  2. TAXOL [Suspect]
     Dosage: 270 MG

REACTIONS (1)
  - HOSPITALISATION [None]
